FAERS Safety Report 7760526-X (Version None)
Quarter: 2011Q3

REPORT INFORMATION
  Report Type: 
  Country: None (occurrence: None)
  Receive Date: 20110919
  Receipt Date: 20110907
  Transmission Date: 20111222
  Serious: Yes (Other)
  Sender: FDA-Public Use
  Company Number: US-ELI_LILLY_AND_COMPANY-US201107004035

PATIENT
  Sex: Male
  Weight: 86.168 kg

DRUGS (4)
  1. XALATAN [Concomitant]
     Route: 047
  2. ZOCOR [Concomitant]
  3. CIALIS [Suspect]
     Indication: ERECTILE DYSFUNCTION
     Dosage: 20 MG, PRN
     Dates: start: 20061215
  4. METFORMIN HCL [Concomitant]

REACTIONS (1)
  - NEPHROLITHIASIS [None]
